FAERS Safety Report 9252421 (Version 1)
Quarter: 2013Q1

REPORT INFORMATION
  Report Type: Spontaneous
  Country: US (occurrence: None)
  Receive Date: 20130305
  Receipt Date: 20130305
  Transmission Date: 20140127
  Serious: Yes (Hospitalization)
  Sender: FDA-Public Use
  Company Number: 163-21880-12092534

PATIENT
  Age: 79 Year
  Sex: Male

DRUGS (2)
  1. REVLIMID (LENALIDOMIDE) (CAPSULES) [Suspect]
     Indication: PLASMA CELL MYELOMA
     Dosage: 10 MG, 21 IN 21 D, PO
     Route: 048
     Dates: start: 20101208, end: 2011
  2. DEXAMETHASONE (DEXAMETHASONE) [Suspect]
     Indication: PLASMA CELL MYELOMA
     Dosage: FOR 4 DAYS, UNK 4 IN 1 D

REACTIONS (1)
  - Deep vein thrombosis [None]
